FAERS Safety Report 9037075 (Version 1)
Quarter: 2013Q1

REPORT INFORMATION
  Report Type: Report from Study
  Country: US (occurrence: US)
  Receive Date: 20130129
  Receipt Date: 20130129
  Transmission Date: 20140127
  Serious: Yes (Hospitalization)
  Sender: FDA-Public Use
  Company Number: US-ABBOTT-12P-163-0891916-00

PATIENT
  Age: 52 Year
  Sex: Male
  Weight: 69.92 kg

DRUGS (6)
  1. HUMIRA 40 MG/0.8 ML PEN [Suspect]
     Indication: PSORIASIS
     Route: 058
     Dates: start: 2005
  2. HUMIRA 40 MG/0.8 ML PEN [Suspect]
     Indication: ARTHRITIS
  3. PLAVIX [Concomitant]
     Indication: PRODUCT USED FOR UNKNOWN INDICATION
  4. METOPROLOL [Concomitant]
     Indication: PRODUCT USED FOR UNKNOWN INDICATION
  5. ASA [Concomitant]
     Indication: PRODUCT USED FOR UNKNOWN INDICATION
  6. BETAMETHASONE DIPROPIONATE [Concomitant]
     Indication: PSORIASIS
     Route: 061

REACTIONS (3)
  - Fungal infection [Not Recovered/Not Resolved]
  - Chest pain [Recovered/Resolved]
  - Tooth infection [Not Recovered/Not Resolved]
